FAERS Safety Report 24174985 (Version 2)
Quarter: 2024Q4

REPORT INFORMATION
  Report Type: Report from Study
  Country: TR (occurrence: TR)
  Receive Date: 20240805
  Receipt Date: 20241118
  Transmission Date: 20250115
  Serious: Yes (Death, Other)
  Sender: PFIZER
  Company Number: TR-PFIZER INC-PV202400100923

PATIENT
  Age: 55 Year
  Sex: Male

DRUGS (12)
  1. TIGECYCLINE [Suspect]
     Active Substance: TIGECYCLINE
     Indication: Meningitis
     Dosage: 2*5 MG
     Route: 037
  2. TIGECYCLINE [Suspect]
     Active Substance: TIGECYCLINE
     Indication: Acinetobacter bacteraemia
     Dosage: 2*50 MG
     Route: 042
  3. CEFOPERAZONE SODIUM\SULBACTAM SODIUM [Suspect]
     Active Substance: CEFOPERAZONE SODIUM\SULBACTAM SODIUM
     Indication: Meningitis
     Dosage: 3*2 GR
  4. CEFOPERAZONE SODIUM\SULBACTAM SODIUM [Suspect]
     Active Substance: CEFOPERAZONE SODIUM\SULBACTAM SODIUM
     Indication: Acinetobacter bacteraemia
  5. MEROPENEM [Suspect]
     Active Substance: MEROPENEM
     Indication: Meningitis
     Dosage: 3*1 GR
  6. MEROPENEM [Suspect]
     Active Substance: MEROPENEM
     Indication: Acinetobacter bacteraemia
  7. COLISTIN [Suspect]
     Active Substance: COLISTIN
     Indication: Meningitis
     Dosage: 1*300 MG LOADING
     Route: 042
  8. COLISTIN [Suspect]
     Active Substance: COLISTIN
     Indication: Acinetobacter bacteraemia
     Dosage: 2*150 MG MAINTENANCE
     Route: 042
  9. GENTAMICIN [Suspect]
     Active Substance: GENTAMICIN
     Indication: Meningitis
     Dosage: 1*240 MG
  10. GENTAMICIN [Suspect]
     Active Substance: GENTAMICIN
     Indication: Acinetobacter bacteraemia
  11. MICAFUNGIN [Suspect]
     Active Substance: MICAFUNGIN SODIUM
     Indication: Meningitis
     Dosage: 1*100 MG
  12. MICAFUNGIN [Suspect]
     Active Substance: MICAFUNGIN SODIUM
     Indication: Acinetobacter bacteraemia

REACTIONS (1)
  - Drug ineffective [Fatal]
